FAERS Safety Report 6085534-9 (Version None)
Quarter: 2009Q1

REPORT INFORMATION
  Report Type: 
  Country: None (occurrence: None)
  Receive Date: 20090220
  Receipt Date: 20090210
  Transmission Date: 20090719
  Serious: Yes (Hospitalization)
  Sender: FDA-Public Use
  Company Number: IE-AVENTIS-200911429GDDC

PATIENT
  Age: 64 Year
  Sex: Male

DRUGS (9)
  1. TAXOTERE [Suspect]
     Route: 042
     Dates: start: 20070514, end: 20070718
  2. LYRICA [Concomitant]
     Route: 048
  3. ZOFRAN [Concomitant]
     Route: 048
  4. CODALAX                            /00161701/ [Concomitant]
  5. CARDICON [Concomitant]
     Route: 048
  6. LISINOPRIL [Concomitant]
     Route: 048
  7. ASPIRIN [Concomitant]
     Route: 048
  8. OXYCONTIN [Concomitant]
     Route: 048
  9. NEORECORMON [Concomitant]
     Route: 058

REACTIONS (7)
  - COUGH [None]
  - DIARRHOEA [None]
  - LOBAR PNEUMONIA [None]
  - NEUTROPENIA [None]
  - RESPIRATORY TRACT INFECTION [None]
  - SOMNOLENCE [None]
  - TREMOR [None]
